FAERS Safety Report 4979544-X (Version None)
Quarter: 2006Q2

REPORT INFORMATION
  Report Type: 
  Country: None (occurrence: None)
  Receive Date: 20060421
  Receipt Date: 20060412
  Transmission Date: 20061013
  Serious: Yes (Hospitalization)
  Sender: FDA-Public Use
  Company Number: US-ROCHE-444337

PATIENT
  Age: 53 Year
  Sex: Female
  Weight: 72.6 kg

DRUGS (2)
  1. TORADOL [Suspect]
     Route: 065
     Dates: start: 19990615, end: 19990615
  2. TRANXENE [Concomitant]
     Indication: MUSCLE SPASMS

REACTIONS (5)
  - ANAEMIA [None]
  - CHEST PAIN [None]
  - DYSURIA [None]
  - HAEMATURIA [None]
  - HEMIPLEGIA [None]
